FAERS Safety Report 10175798 (Version 1)
Quarter: 2014Q2

REPORT INFORMATION
  Report Type: Spontaneous
  Country: US (occurrence: None)
  Receive Date: 20140425
  Receipt Date: 20140425
  Transmission Date: 20141212
  Serious: No
  Sender: FDA-Public Use
  Company Number: AP356-00563-SPO-US

PATIENT
  Age: 61 Year
  Sex: Female
  Weight: 87 kg

DRUGS (10)
  1. BELVIQ [Suspect]
     Indication: WEIGHT DECREASED
     Dosage: 20 MG, 2 IN 1 D, ORAL
     Route: 048
     Dates: start: 20140310, end: 20140310
  2. METFORMIN [Concomitant]
  3. TRICOR (ADENOSINE) [Concomitant]
  4. DEXILANT (DEXLANSOPRAZOLE) [Concomitant]
  5. VITAMIN B (THIAMINE HYDROCHLORIDE) [Concomitant]
  6. CALCIUM (CALCIUM) [Concomitant]
  7. VITAMIN C (ASCORBIC ACID) [Concomitant]
  8. VITAMIN K (PHYTOMENADIONE) [Concomitant]
  9. GLUCOSAMIDE (GLUCOSAMIDE) [Concomitant]
  10. CHONDROITIN (CHONDROITIN) [Concomitant]

REACTIONS (2)
  - Dizziness [None]
  - Somnolence [None]
